FAERS Safety Report 14699761 (Version 2)
Quarter: 2018Q4

REPORT INFORMATION
  Report Type: Report from Study
  Country: FR (occurrence: FR)
  Receive Date: 20180330
  Receipt Date: 20181004
  Transmission Date: 20190204
  Serious: Yes (Hospitalization)
  Sender: FDA-Public Use
  Company Number: FR-ASTELLAS-2018US015669

PATIENT
  Age: 3 Year
  Sex: Male

DRUGS (3)
  1. BEVACIZUMAB. [Suspect]
     Active Substance: BEVACIZUMAB
     Indication: BRAIN STEM GLIOMA
     Dosage: MOST RECENT DOSE PRIOR TO SAE: 01/MAR/2018, CUMULATIVE DOSE BEFORE EVENT ONSET OF 640 MG
     Route: 042
     Dates: start: 20180118
  2. SOLUPRED (FRANCE) [Concomitant]
     Active Substance: PREDNISOLONE SODIUM METAZOATE
     Indication: PRODUCT USED FOR UNKNOWN INDICATION
     Route: 048
     Dates: start: 20180302
  3. ERLOTINIB [Suspect]
     Active Substance: ERLOTINIB
     Indication: BRAIN STEM GLIOMA
     Dosage: MOST RECENT DOSE PRIOR TO SAE: 15/MAR/2018, CUMULATIVE DOSE BEFORE EVENT ONSET OF 8950 MG
     Route: 048
     Dates: start: 20171121, end: 20180316

REACTIONS (3)
  - Streptococcal infection [Recovered/Resolved]
  - Staphylococcal infection [Recovered/Resolved]
  - Skin toxicity [Recovered/Resolved]

NARRATIVE: CASE EVENT DATE: 20180316
